FAERS Safety Report 13011449 (Version 1)
Quarter: 2016Q4

REPORT INFORMATION
  Report Type: Spontaneous
  Country: CA (occurrence: CA)
  Receive Date: 20161209
  Receipt Date: 20161209
  Transmission Date: 20170207
  Serious: Yes (Hospitalization)
  Sender: FDA-Public Use
  Company Number: CA-ROCHE-1865146

PATIENT
  Age: 82 Year
  Sex: Female

DRUGS (11)
  1. CALCIUM CARBONATE. [Concomitant]
     Active Substance: CALCIUM CARBONATE
  2. FOLIC ACID. [Concomitant]
     Active Substance: FOLIC ACID
     Route: 065
  3. ACETAMINOPHEN AND CODEINE [Concomitant]
     Active Substance: ACETAMINOPHEN\CODEINE PHOSPHATE
  4. ALENDRONATE SODIUM. [Concomitant]
     Active Substance: ALENDRONATE SODIUM
     Route: 065
  5. BISOPROLOL [Concomitant]
     Active Substance: BISOPROLOL
     Route: 065
  6. ERGOCALCIFEROL. [Concomitant]
     Active Substance: ERGOCALCIFEROL
  7. ZYDELIG [Suspect]
     Active Substance: IDELALISIB
     Route: 048
  8. ZOPICLONE [Concomitant]
     Active Substance: ZOPICLONE
     Route: 065
  9. PANTOPRAZOLE [Concomitant]
     Active Substance: PANTOPRAZOLE SODIUM
     Route: 065
  10. ZYDELIG [Suspect]
     Active Substance: IDELALISIB
     Indication: CHRONIC LYMPHOCYTIC LEUKAEMIA
     Dosage: THERAPY DURATION:  9.0 MONTH(S)
     Route: 048
  11. RITUXAN [Suspect]
     Active Substance: RITUXIMAB
     Indication: CHRONIC LYMPHOCYTIC LEUKAEMIA
     Route: 042

REACTIONS (25)
  - Limb mass [Recovered/Resolved]
  - Asthenia [Recovered/Resolved]
  - Hyperthyroidism [Recovered/Resolved]
  - Nausea [Recovered/Resolved]
  - Pain [Recovered/Resolved]
  - Varicose vein [Recovered/Resolved]
  - Viral infection [Recovered/Resolved]
  - Vomiting [Recovered/Resolved]
  - Eye disorder [Recovered/Resolved]
  - Fatigue [Recovered/Resolved]
  - Gastroenteritis viral [Recovered/Resolved]
  - Stomatitis [Recovered/Resolved]
  - Influenza [Recovered/Resolved]
  - Abdominal discomfort [Recovered/Resolved]
  - Chest discomfort [Recovered/Resolved]
  - Decreased appetite [Recovered/Resolved]
  - Immunodeficiency [Recovered/Resolved]
  - Anorectal discomfort [Recovered/Resolved]
  - Dyspnoea [Recovered/Resolved]
  - Feeling abnormal [Recovered/Resolved]
  - Tinnitus [Recovered/Resolved]
  - Constipation [Recovered/Resolved]
  - Joint swelling [Recovered/Resolved]
  - Visual impairment [Recovered/Resolved]
  - Abdominal pain upper [Recovered/Resolved]
